FAERS Safety Report 5451534-2 (Version None)
Quarter: 2007Q3

REPORT INFORMATION
  Report Type: 
  Country: None (occurrence: None)
  Receive Date: 20070913
  Receipt Date: 20070904
  Transmission Date: 20080115
  Serious: Yes (Other)
  Sender: FDA-Public Use
  Company Number: US-GENENTECH-247277

PATIENT

DRUGS (2)
  1. BEVACIZUMAB [Suspect]
     Indication: OVARIAN CANCER
  2. DOXIL [Concomitant]
     Indication: OVARIAN CANCER

REACTIONS (1)
  - SKIN TOXICITY [None]
